FAERS Safety Report 8319860-7 (Version None)
Quarter: 2012Q2

REPORT INFORMATION
  Report Type: 
  Country: None (occurrence: None)
  Receive Date: 20120427
  Receipt Date: 20120418
  Transmission Date: 20120825
  Serious: Yes (Other)
  Sender: FDA-Public Use
  Company Number: US-PFIZER INC-2012096763

PATIENT
  Sex: Female
  Weight: 68 kg

DRUGS (3)
  1. CELEBREX [Suspect]
     Indication: MYALGIA
     Dosage: 100 MG, UNK
  2. CELEBREX [Suspect]
     Indication: SYSTEMIC LUPUS ERYTHEMATOSUS
  3. CELEBREX [Suspect]
     Indication: ARTHRITIS
     Dosage: 200 MG, 2X/DAY
     Route: 048

REACTIONS (6)
  - SJOGREN'S SYNDROME [None]
  - BLOOD CHOLESTEROL INCREASED [None]
  - CYSTITIS [None]
  - PALPITATIONS [None]
  - BLOOD PRESSURE INCREASED [None]
  - FIBROMYALGIA [None]
